FAERS Safety Report 12210779 (Version 1)
Quarter: 2016Q1

REPORT INFORMATION
  Report Type: Spontaneous
  Country: US (occurrence: US)
  Receive Date: 20160325
  Receipt Date: 20160325
  Transmission Date: 20160526
  Serious: No
  Sender: FDA-Public Use
  Company Number: US-GLAXOSMITHKLINE-US2016040434

PATIENT
  Age: 36 Year
  Sex: Female

DRUGS (2)
  1. CHILDRENS FLONASE ALLERGY RELIEF [Suspect]
     Active Substance: FLUTICASONE PROPIONATE
     Indication: NASAL CONGESTION
     Dosage: UNK
     Dates: start: 20160318, end: 20160320
  2. CHILDRENS FLONASE ALLERGY RELIEF [Suspect]
     Active Substance: FLUTICASONE PROPIONATE
     Indication: SECRETION DISCHARGE

REACTIONS (1)
  - Drug ineffective for unapproved indication [Unknown]
